FAERS Safety Report 5087579-4 (Version None)
Quarter: 2006Q3

REPORT INFORMATION
  Report Type: 
  Country: None (occurrence: None)
  Receive Date: 20060821
  Receipt Date: 20060811
  Transmission Date: 20061208
  Serious: Yes (Other)
  Sender: FDA-Public Use
  Company Number: 2006097701

PATIENT
  Sex: Female

DRUGS (5)
  1. ZOLOFT [Suspect]
     Indication: DEPRESSION
     Dosage: 200 MG (100 MG, 2 IN 1 D)
  2. TRAZODONE HCL [Concomitant]
  3. CATAFLAM [Concomitant]
  4. DARVOCET [Concomitant]
  5. PSEUDOFED (PSEUDOEPHEDRINE) [Concomitant]

REACTIONS (3)
  - DYSARTHRIA [None]
  - FACIAL PALSY [None]
  - FIBROMYALGIA [None]
